FAERS Safety Report 9878194 (Version 1)
Quarter: 2014Q1

REPORT INFORMATION
  Report Type: Spontaneous
  Country: JP (occurrence: JP)
  Receive Date: 20140206
  Receipt Date: 20140206
  Transmission Date: 20141002
  Serious: Yes (Other)
  Sender: FDA-Public Use
  Company Number: JP-PFIZER INC-2014031251

PATIENT
  Age: 70 Year
  Sex: Female

DRUGS (5)
  1. XALATAN [Suspect]
     Indication: EYE DISORDER
     Route: 047
  2. VEGAMOX [Concomitant]
  3. FLUMETHOLON [Concomitant]
  4. DICLOD [Concomitant]
  5. DIQUAS [Concomitant]

REACTIONS (2)
  - Cataract [Unknown]
  - Eye discharge [Unknown]
